FAERS Safety Report 4886475-2 (Version None)
Quarter: 2006Q1

REPORT INFORMATION
  Report Type: 
  Country: None (occurrence: None)
  Receive Date: 20060120
  Receipt Date: 20060109
  Transmission Date: 20060701
  Serious: Yes (Hospitalization)
  Sender: FDA-Public Use
  Company Number: FR-BRISTOL-MYERS SQUIBB COMPANY-13243621

PATIENT
  Age: 84 Year
  Sex: Female

DRUGS (6)
  1. ELISOR TABS 20 MG [Suspect]
     Indication: HYPERCHOLESTEROLAEMIA
     Route: 048
     Dates: end: 20051023
  2. VOLTAREN [Suspect]
     Dates: end: 20051023
  3. GINKOR FORT [Suspect]
     Dates: end: 20051023
  4. MOPRAL [Suspect]
     Dates: end: 20051023
  5. VASTAREL [Suspect]
     Dates: end: 20051023
  6. LAMALINE [Suspect]
     Dates: end: 20051023

REACTIONS (3)
  - CONFUSIONAL STATE [None]
  - DISORIENTATION [None]
  - HALLUCINATION [None]
